FAERS Safety Report 15896802 (Version 1)
Quarter: 2019Q1

REPORT INFORMATION
  Report Type: Spontaneous
  Country: ES (occurrence: ES)
  Receive Date: 20190131
  Receipt Date: 20190131
  Transmission Date: 20190417
  Serious: Yes (Other)
  Sender: FDA-Public Use
  Company Number: ES-BRACCO-2019ES00411

PATIENT
  Age: 41 Year
  Sex: Female

DRUGS (6)
  1. VISIPAQUE [Concomitant]
     Active Substance: IODIXANOL
     Indication: ARTERIOGRAM
     Dosage: TOTAL
     Route: 042
     Dates: start: 20181221, end: 20181221
  2. ENANTYUM [Concomitant]
     Active Substance: DEXKETOPROFEN TROMETAMOL
     Route: 048
     Dates: start: 20181121
  3. TRYPTIZOL [Concomitant]
     Active Substance: AMITRIPTYLINE HYDROCHLORIDE
     Route: 048
     Dates: start: 20181121
  4. DESOGESTREL [Concomitant]
     Active Substance: DESOGESTREL
     Dosage: UNK
     Route: 048
     Dates: start: 20180406, end: 20181115
  5. IOPAMIRO [Suspect]
     Active Substance: IOPAMIDOL
     Indication: ARTERIOGRAM
     Dosage: 40 ML, TOTAL
     Route: 042
     Dates: start: 20181221, end: 20181221
  6. PARACETAMOL [Concomitant]
     Active Substance: ACETAMINOPHEN
     Route: 048
     Dates: start: 20181121

REACTIONS (1)
  - Eye pain [Recovered/Resolved]

NARRATIVE: CASE EVENT DATE: 20181221
